FAERS Safety Report 5168408-7 (Version None)
Quarter: 2006Q4

REPORT INFORMATION
  Report Type: 
  Country: None (occurrence: None)
  Receive Date: 20061208
  Receipt Date: 20061130
  Transmission Date: 20070319
  Serious: Yes (Hospitalization)
  Sender: FDA-Public Use
  Company Number: ES-ROCHE-473265

PATIENT
  Age: 50 Year
  Sex: Female
  Weight: 51 kg

DRUGS (2)
  1. XELODA [Suspect]
     Indication: BREAST CANCER
     Route: 042
     Dates: end: 20060801
  2. HERCEPTIN [Suspect]
     Indication: BREAST CANCER
     Dosage: FORMULATION: POWDER + SOLVENT, INFUSION SOLUTION
     Route: 042
     Dates: start: 20051003, end: 20060801

REACTIONS (4)
  - CARDIAC FAILURE [None]
  - MITRAL VALVE INCOMPETENCE [None]
  - PULMONARY HYPERTENSION [None]
  - VENTRICULAR DYSFUNCTION [None]
